FAERS Safety Report 9433697 (Version 2)
Quarter: 2013Q3

REPORT INFORMATION
  Report Type: Spontaneous
  Country: IT (occurrence: IT)
  Receive Date: 20130731
  Receipt Date: 20130805
  Transmission Date: 20140515
  Serious: Yes (Death, Other)
  Sender: FDA-Public Use
  Company Number: IT-OTSUKA-US-2013-11432

PATIENT
  Age: 18 Year
  Sex: Male

DRUGS (4)
  1. BUSULFEX [Suspect]
     Indication: BONE MARROW CONDITIONING REGIMEN
     Dosage: 9.6 MG/KG, UNK
     Route: 065
  2. FLUDARABINE [Suspect]
     Indication: BONE MARROW CONDITIONING REGIMEN
     Dosage: 150 MG/M2, UNK
     Route: 065
  3. THIOTEPA [Suspect]
     Indication: BONE MARROW CONDITIONING REGIMEN
     Dosage: 20 MG/KG, UNK
     Route: 065
  4. CICLOSPORIN [Concomitant]
     Indication: PROPHYLAXIS AGAINST GRAFT VERSUS HOST DISEASE

REACTIONS (4)
  - Death [Fatal]
  - Cystitis haemorrhagic [Unknown]
  - Viraemia [Unknown]
  - Acute graft versus host disease [Unknown]
